FAERS Safety Report 11742783 (Version 1)
Quarter: 2015Q4

REPORT INFORMATION
  Report Type: Other
  Country: GB (occurrence: GB)
  Receive Date: 20151116
  Receipt Date: 20151116
  Transmission Date: 20160304
  Serious: Yes (Other)
  Sender: FDA-Public Use
  Company Number: GB-DEP_13037_2015

PATIENT
  Age: 31 Year
  Sex: Female
  Weight: 55 kg

DRUGS (6)
  1. TAPENTADOL (TAPENTADOL) [Suspect]
     Active Substance: TAPENTADOL
     Indication: COMPLEX REGIONAL PAIN SYNDROME
     Route: 048
     Dates: start: 20151019, end: 20151021
  2. CO-CODAMOL (CODEINE PHOSPHATE, PARACETAMOL) [Concomitant]
     Dosage: DF
  3. GABAPENTIN (GABAPENTIN) [Concomitant]
     Active Substance: GABAPENTIN
     Dosage: DF
  4. VITAMIN D3 [Concomitant]
     Active Substance: CHOLECALCIFEROL
     Dosage: DF
  5. PARACETAMOL (PARACETAMOL) [Concomitant]
     Active Substance: ACETAMINOPHEN
     Dosage: DF
  6. CERAZETTE /00754001/ (DESOGESTREL) [Concomitant]
     Dosage: DF

REACTIONS (17)
  - Night sweats [Recovering/Resolving]
  - Vertigo [Recovered/Resolved]
  - Feeling drunk [Recovered/Resolved]
  - Headache [Recovering/Resolving]
  - Abnormal dreams [Recovering/Resolving]
  - Tremor [Recovered/Resolved]
  - Amnesia [Recovered/Resolved]
  - Anger [Recovered/Resolved]
  - Pain [Recovered/Resolved with Sequelae]
  - Cold sweat [Recovering/Resolving]
  - Nausea [Recovering/Resolving]
  - Fatigue [Recovered/Resolved with Sequelae]
  - Dizziness postural [Recovered/Resolved]
  - Vision blurred [Recovered/Resolved]
  - Abasia [Recovered/Resolved]
  - Hyperacusis [Recovered/Resolved]
  - Hypersomnia [Recovered/Resolved]

NARRATIVE: CASE EVENT DATE: 20151019
